FAERS Safety Report 20015875 (Version 1)
Quarter: 2021Q4

REPORT INFORMATION
  Report Type: Spontaneous
  Country: US (occurrence: None)
  Receive Date: 20211101
  Receipt Date: 20211101
  Transmission Date: 20220303
  Serious: No
  Sender: FDA-Public Use
  Company Number: None

PATIENT
  Age: 40 Year
  Sex: Female

DRUGS (1)
  1. REGEN-COV [Suspect]
     Active Substance: CASIRIVIMAB\IMDEVIMAB
     Indication: COVID-19
     Route: 042

REACTIONS (8)
  - Wheezing [None]
  - Throat tightness [None]
  - Paraesthesia oral [None]
  - Dizziness [None]
  - Paraesthesia [None]
  - Nausea [None]
  - Vomiting [None]
  - Use of accessory respiratory muscles [None]

NARRATIVE: CASE EVENT DATE: 20211013
